FAERS Safety Report 9428323 (Version 1)
Quarter: 2013Q3

REPORT INFORMATION
  Report Type: Report from Study
  Country: TH (occurrence: TH)
  Receive Date: 20130730
  Receipt Date: 20130730
  Transmission Date: 20140515
  Serious: Yes (Death, Life-Threatening, Hospitalization)
  Sender: FDA-Public Use
  Company Number: TH-BAYER-2013-089577

PATIENT
  Age: 64 Year
  Sex: Male

DRUGS (1)
  1. ULTRAVIST [Suspect]
     Indication: SCAN WITH CONTRAST
     Dosage: UNK UNK, ONCE
     Route: 042

REACTIONS (4)
  - Anaphylactic reaction [None]
  - Cardio-respiratory arrest [Recovered/Resolved]
  - Renal failure acute [Fatal]
  - Bacterial sepsis [Fatal]
